FAERS Safety Report 5114201-0 (Version None)
Quarter: 2006Q3

REPORT INFORMATION
  Report Type: 
  Country: None (occurrence: None)
  Receive Date: 20060925
  Receipt Date: 20060914
  Transmission Date: 20061208
  Serious: Yes (Hospitalization)
  Sender: FDA-Public Use
  Company Number: US-SANOFI-SYNTHELABO-A03200605693

PATIENT
  Sex: Female
  Weight: 28.5 kg

DRUGS (3)
  1. OXALIPLATIN [Suspect]
     Indication: DRUG USE FOR UNKNOWN INDICATION
     Route: 042
     Dates: start: 20060526, end: 20060526
  2. LEUCOVORIN CALCIUM [Suspect]
     Route: 042
     Dates: start: 20060526, end: 20060526
  3. FLUOROURACIL [Suspect]
     Route: 042
     Dates: start: 20060526, end: 20060526

REACTIONS (2)
  - CONVULSION [None]
  - REVERSIBLE POSTERIOR LEUKOENCEPHALOPATHY SYNDROME [None]
